FAERS Safety Report 4686365-4 (Version None)
Quarter: 2005Q2

REPORT INFORMATION
  Report Type: 
  Country: None (occurrence: None)
  Receive Date: 20050606
  Receipt Date: 20050524
  Transmission Date: 20051028
  Serious: Yes (Disabling)
  Sender: FDA-Public Use
  Company Number: 2005079556

PATIENT
  Age: 92 Year
  Sex: Male

DRUGS (5)
  1. CELEBREX [Suspect]
     Indication: OSTEOARTHRITIS
     Dosage: 200 MG (200 MG, 1 IN 1 D), ORAL
     Route: 048
     Dates: start: 20031001, end: 20050504
  2. FELODIPINE [Concomitant]
  3. ALFUZOSIN (ALFUZOSIN) [Concomitant]
  4. LACTULOSE [Concomitant]
  5. FERROUS SULPHATE (FERROUS SULFATE) [Concomitant]

REACTIONS (1)
  - CEREBRAL INFARCTION [None]
